FAERS Safety Report 6612479-5 (Version None)
Quarter: 2010Q1

REPORT INFORMATION
  Report Type: 
  Country: None (occurrence: None)
  Receive Date: 20100303
  Receipt Date: 20100225
  Transmission Date: 20100710
  Serious: Yes (Disabling)
  Sender: FDA-Public Use
  Company Number: GB-PFIZER INC-2010024323

PATIENT
  Age: 54 Year
  Sex: Female
  Weight: 90 kg

DRUGS (37)
  1. ATORVASTATIN CALCIUM [Suspect]
     Indication: BLOOD CHOLESTEROL INCREASED
     Dosage: 40 MG, UNK
     Route: 048
     Dates: start: 20090924, end: 20091119
  2. AMITRIPTYLINE HYDROCHLORIDE [Concomitant]
     Dosage: 10 MG, 2X/DAY
  3. ANISEED [Concomitant]
     Dosage: UNK
  4. ARNICA EXTRACT [Concomitant]
     Dosage: UNK
     Route: 061
  5. BRICANYL [Concomitant]
     Dosage: UNK
  6. PROCHLORPERAZINE MALEATE [Concomitant]
     Dosage: 3 MG, UNK
  7. CALCICHEW-D3 [Concomitant]
     Dosage: TWICE DAILY
  8. CLOTRIMAZOLE [Concomitant]
     Dosage: UNK
  9. CANESTEN-HC [Concomitant]
     Dosage: TWICE DAILY
     Route: 061
  10. CHLORPHENAMINE [Concomitant]
     Dosage: 4 MG, UNK
  11. ACETAMINOPHEN AND CODEINE PHOSPHATE [Concomitant]
     Dosage: UNK
  12. CODEINE PHOSPHATE [Concomitant]
     Indication: DIARRHOEA
     Dosage: 30 MG, UNK
  13. CYCLIZINE [Concomitant]
     Indication: NAUSEA
     Dosage: 50 MG, UNK
  14. DIFLUCAN [Concomitant]
     Dosage: 150 MG, UNK
  15. EPIPEN [Concomitant]
     Dosage: 300 UG, UNK
  16. ESOMEPRAZOLE [Concomitant]
     Dosage: 40 MG, UNK
  17. FLECAINIDE [Concomitant]
     Dosage: 100 MG, 2X/DAY
  18. FRUMIL [Concomitant]
     Dosage: 1 DF, 1X/DAY
  19. GAVISCON [Concomitant]
     Dosage: UNK
  20. LOPERAMIDE HYDROCHLORIDE [Concomitant]
     Indication: DIARRHOEA
     Dosage: 2 MG, UNK
  21. LORATADINE [Concomitant]
     Dosage: 10 MG, 1X/DAY
  22. PARACETAMOL [Concomitant]
     Dosage: 500 MG, UNK
  23. PIZOTIFEN [Concomitant]
     Dosage: 1.5 MG, 1X/DAY
  24. PREDNISOLONE [Concomitant]
     Dosage: 2.5 MG, UNK
  25. PREDNISOLONE [Concomitant]
     Dosage: 5 MG, UNK
  26. PREGABALIN [Concomitant]
     Dosage: 150 MG, 2X/DAY
  27. PROVERA [Concomitant]
     Dosage: 10 MG, UNK
  28. PULMICORT [Concomitant]
     Dosage: UNK
  29. RAMIPRIL [Concomitant]
     Dosage: 2.5 MG, 1X/DAY
  30. SANOMIGRAN [Concomitant]
     Dosage: 500 UG, 2X/DAY
  31. SERC [Concomitant]
     Dosage: 16 MG, 3X/DAY
  32. MONTELUKAST SODIUM [Concomitant]
     Dosage: 10 MG, 1X/DAY
  33. SYMBICORT [Concomitant]
     Route: 055
  34. TRAMADOL HYDROCHLORIDE [Concomitant]
     Dosage: 1 DF, 2X/DAY
  35. VALERIANA OFFICINALIS [Concomitant]
     Dosage: UNK
  36. IRON [Concomitant]
  37. AVENA [Concomitant]
     Dosage: UNK

REACTIONS (1)
  - ASTHMA [None]
